FAERS Safety Report 19535528 (Version 1)
Quarter: 2021Q3

REPORT INFORMATION
  Report Type: Spontaneous
  Country: IT (occurrence: IT)
  Receive Date: 20210713
  Receipt Date: 20210713
  Transmission Date: 20211014
  Serious: Yes (Hospitalization)
  Sender: FDA-Public Use
  Company Number: IT-MYLANLABS-2021M1040720

PATIENT
  Age: 7 Year
  Sex: Female

DRUGS (6)
  1. LINEZOLID. [Suspect]
     Active Substance: LINEZOLID
     Indication: MENINGOENCEPHALITIS BACTERIAL
     Dosage: UNK
  2. ETHAMBUTOL [Interacting]
     Active Substance: ETHAMBUTOL HYDROCHLORIDE
     Indication: MENINGOENCEPHALITIS BACTERIAL
     Dosage: UNK
  3. MOXIFLOXACIN. [Interacting]
     Active Substance: MOXIFLOXACIN
     Indication: MENINGOENCEPHALITIS BACTERIAL
     Dosage: UNK
  4. ISONIAZID. [Suspect]
     Active Substance: ISONIAZID
     Indication: MENINGOENCEPHALITIS BACTERIAL
     Dosage: UNK
  5. CYCLOSERINE. [Interacting]
     Active Substance: CYCLOSERINE
     Indication: MENINGOENCEPHALITIS BACTERIAL
     Dosage: UNK
  6. AMIKACIN. [Interacting]
     Active Substance: AMIKACIN
     Indication: MENINGOENCEPHALITIS BACTERIAL
     Dosage: UNK

REACTIONS (7)
  - Language disorder [Recovering/Resolving]
  - Dyskinesia [Recovering/Resolving]
  - Dysmetria [Recovering/Resolving]
  - Drug interaction [Unknown]
  - Vertigo [Recovering/Resolving]
  - Encephalitis [Recovering/Resolving]
  - Dysdiadochokinesis [Recovering/Resolving]
